FAERS Safety Report 9563892 (Version 1)
Quarter: 2013Q3

REPORT INFORMATION
  Report Type: Spontaneous
  Country: JP (occurrence: JP)
  Receive Date: 20130927
  Receipt Date: 20130927
  Transmission Date: 20140515
  Serious: Yes (Hospitalization)
  Sender: FDA-Public Use
  Company Number: JP-MERCK-1309JPN010339

PATIENT
  Age: 10 Year
  Sex: 0

DRUGS (2)
  1. BONALON [Suspect]
     Indication: JUVENILE IDIOPATHIC ARTHRITIS
     Route: 048
  2. ACTEMRA [Suspect]
     Indication: JUVENILE IDIOPATHIC ARTHRITIS
     Route: 041

REACTIONS (2)
  - Drug-induced liver injury [Recovered/Resolved]
  - Overdose [Unknown]
